FAERS Safety Report 6030648-2 (Version None)
Quarter: 2009Q1

REPORT INFORMATION
  Report Type: 
  Country: None (occurrence: None)
  Receive Date: 20090106
  Receipt Date: 20090106
  Transmission Date: 20090719
  Serious: Yes (Hospitalization)
  Sender: FDA-Public Use
  Company Number: None

PATIENT
  Sex: Male
  Weight: 105 kg

DRUGS (10)
  1. XIGRIS [Suspect]
     Indication: SEPTIC SHOCK
     Dosage: 24 MCG/KG HR DAILY IV DRIP
     Route: 041
     Dates: start: 20081214, end: 20081218
  2. SODIUM PHOSPHATE [Concomitant]
  3. HYDROCORTISONE [Concomitant]
  4. NOREPINEPHRINE [Concomitant]
  5. VASOPRESSIN [Concomitant]
  6. PHENYLEPHRINE [Concomitant]
  7. MIDAZOLAM HCL [Concomitant]
  8. CIPROFLOXACIN [Concomitant]
  9. PIPERACILLIN AND TAZOBACTAM [Concomitant]
  10. VANCOMYCIN HYDROCHLORIDE [Concomitant]

REACTIONS (3)
  - PNEUMONIA KLEBSIELLA [None]
  - SUBARACHNOID HAEMORRHAGE [None]
  - UNRESPONSIVE TO STIMULI [None]
